FAERS Safety Report 18006873 (Version 5)
Quarter: 2020Q4

REPORT INFORMATION
  Report Type: Report from Study
  Country: US (occurrence: US)
  Receive Date: 20200710
  Receipt Date: 20201204
  Transmission Date: 20210113
  Serious: Yes (Other)
  Sender: FDA-Public Use
  Company Number: US-SA-2020SA177893

PATIENT

DRUGS (2)
  1. DUPILUMAB [Suspect]
     Active Substance: DUPILUMAB
     Indication: DERMATITIS ATOPIC
     Dosage: 600 MG, 1X
     Route: 058
     Dates: start: 202006, end: 202006
  2. DUPILUMAB [Suspect]
     Active Substance: DUPILUMAB
     Indication: DERMATITIS ALLERGIC
     Dosage: 300 MG, QOW
     Route: 058
     Dates: start: 2020

REACTIONS (13)
  - Corneal lesion [Unknown]
  - Ocular hyperaemia [Unknown]
  - Migraine [Unknown]
  - Ophthalmic herpes zoster [Unknown]
  - Peripheral swelling [Recovering/Resolving]
  - Conjunctivitis [Unknown]
  - Oral herpes [Not Recovered/Not Resolved]
  - Eye inflammation [Recovered/Resolved]
  - Weight decreased [Unknown]
  - Corneal disorder [Unknown]
  - Vision blurred [Unknown]
  - Eye irritation [Recovered/Resolved]
  - Iris hypopigmentation [Unknown]

NARRATIVE: CASE EVENT DATE: 2020
